FAERS Safety Report 24043487 (Version 3)
Quarter: 2024Q3

REPORT INFORMATION
  Report Type: Spontaneous
  Country: TW (occurrence: TW)
  Receive Date: 20240703
  Receipt Date: 20240708
  Transmission Date: 20241017
  Serious: Yes (Hospitalization, Other)
  Sender: ROCHE
  Company Number: TW-CHUGAI-2024021475

PATIENT
  Age: 36 Year
  Sex: Female
  Weight: 45 kg

DRUGS (7)
  1. ACTEMRA [Suspect]
     Active Substance: TOCILIZUMAB
     Indication: Rheumatoid arthritis
     Dosage: UNK MILLIGRAM
     Route: 042
     Dates: start: 20140411
  2. ACTEMRA [Suspect]
     Active Substance: TOCILIZUMAB
     Indication: Rheumatoid arthritis
     Dosage: UNK MILLIGRAM
     Route: 042
     Dates: start: 20180704, end: 20240515
  3. PREDNISOLONE [Concomitant]
     Active Substance: PREDNISOLONE
     Indication: Rheumatoid arthritis
     Dosage: 10 MILLIGRAM, QD
     Route: 050
     Dates: start: 20240417
  4. METHOTREXATE [Concomitant]
     Active Substance: METHOTREXATE
     Indication: Rheumatoid arthritis
     Dosage: 15 MILLIGRAM, ONCE/WEEK
     Route: 050
     Dates: start: 20240117
  5. CYCLOPHOSPHAMIDE [Concomitant]
     Active Substance: CYCLOPHOSPHAMIDE
     Indication: Rheumatoid arthritis
     Dosage: 25 MILLIGRAM, ONCE/WEEK
     Route: 050
     Dates: start: 20240320
  6. ETORICOXIB [Concomitant]
     Active Substance: ETORICOXIB
     Indication: Rheumatoid arthritis
     Dosage: 60 MILLIGRAM, QD
     Route: 050
     Dates: start: 20240417
  7. TRAMADOL [Concomitant]
     Active Substance: TRAMADOL\TRAMADOL HYDROCHLORIDE
     Indication: Arthralgia
     Dosage: 50 MILLIGRAM, QID
     Route: 050
     Dates: start: 20240521, end: 20240527

REACTIONS (7)
  - Acute kidney injury [Recovered/Resolved]
  - Respiratory syncytial virus infection [Recovered/Resolved]
  - Pneumonia [Recovered/Resolved]
  - Neutropenia [Unknown]
  - Tachycardia [Unknown]
  - Hypotension [Unknown]
  - Escherichia infection [Unknown]

NARRATIVE: CASE EVENT DATE: 20240502
